FAERS Safety Report 4705702-5 (Version None)
Quarter: 2005Q2

REPORT INFORMATION
  Report Type: 
  Country: None (occurrence: None)
  Receive Date: 20050629
  Receipt Date: 20050617
  Transmission Date: 20051028
  Serious: Yes (Other)
  Sender: FDA-Public Use
  Company Number: 2005090515

PATIENT
  Age: 52 Year
  Sex: Female

DRUGS (3)
  1. ALPRAZOLAM [Suspect]
     Indication: ANXIETY
     Dosage: 0.5 MG (0.5 MG, 1 IN 1 D), ORAL
     Route: 048
  2. ALPRAZOLAM [Suspect]
     Indication: PANIC DISORDER
     Dosage: 0.5 MG (0.5 MG, 1 IN 1 D), ORAL
     Route: 048
  3. MONTELUKAST (MOTELUKAST) [Concomitant]

REACTIONS (3)
  - CARDIAC DISORDER [None]
  - PALPITATIONS [None]
  - TACHYCARDIA [None]
